FAERS Safety Report 8160291-0 (Version None)
Quarter: 2012Q1

REPORT INFORMATION
  Report Type: 
  Country: None (occurrence: None)
  Receive Date: 20120223
  Receipt Date: 20120223
  Transmission Date: 20120608
  Serious: Yes (Other)
  Sender: FDA-Public Use
  Company Number: None

PATIENT
  Age: 2 Year
  Sex: Female
  Weight: 11.793 kg

DRUGS (2)
  1. LITTLE TUMMYS STIMULANT LAXATIVE [Suspect]
     Indication: ANORECTAL DISORDER
     Dosage: 3.5 CC
     Route: 048
  2. LITTLE TUMMYS STIMULANT LAXATIVE [Suspect]
     Indication: CONSTIPATION
     Dosage: 3.5 CC
     Route: 048

REACTIONS (3)
  - PRODUCT TASTE ABNORMAL [None]
  - DRUG EFFECT DECREASED [None]
  - PRODUCT PHYSICAL ISSUE [None]
